FAERS Safety Report 21640099 (Version 1)
Quarter: 2022Q4

REPORT INFORMATION
  Report Type: Report from Study
  Country: US (occurrence: US)
  Receive Date: 20221124
  Receipt Date: 20221124
  Transmission Date: 20230112
  Serious: Yes (Hospitalization, Other)
  Sender: FDA-Public Use
  Company Number: US-ABBVIE-4212888

PATIENT
  Sex: Female

DRUGS (1)
  1. HUMIRA [Suspect]
     Active Substance: ADALIMUMAB
     Indication: Crohn^s disease
     Dosage: FORM STRENGTH - 40 MILLIGRAM
     Route: 058
     Dates: start: 20200625, end: 20221014

REACTIONS (9)
  - Accident [Recovered/Resolved]
  - Pneumonia [Recovered/Resolved]
  - Immunodeficiency [Unknown]
  - Therapeutic product effect decreased [Not Recovered/Not Resolved]
  - Blood pressure increased [Not Recovered/Not Resolved]
  - Urinary tract infection [Recovered/Resolved]
  - Localised infection [Unknown]
  - Loss of consciousness [Recovered/Resolved]
  - Influenza [Recovered/Resolved]

NARRATIVE: CASE EVENT DATE: 20220101
